FAERS Safety Report 4684759-4 (Version None)
Quarter: 2005Q2

REPORT INFORMATION
  Report Type: 
  Country: None (occurrence: None)
  Receive Date: 20050531
  Receipt Date: 20050330
  Transmission Date: 20051028
  Serious: Yes (Hospitalization, Other)
  Sender: FDA-Public Use
  Company Number: USA050187460

PATIENT
  Age: 17 Year
  Sex: Male

DRUGS (1)
  1. ZYPREXA [Suspect]
     Indication: SCHIZOPHRENIA
     Dosage: 20 MG DAY

REACTIONS (2)
  - INTENTIONAL MISUSE [None]
  - NEUROLEPTIC MALIGNANT SYNDROME [None]
